FAERS Safety Report 6277756-9 (Version None)
Quarter: 2009Q3

REPORT INFORMATION
  Report Type: 
  Country: None (occurrence: None)
  Receive Date: 20090722
  Receipt Date: 20090715
  Transmission Date: 20100115
  Serious: Yes (Hospitalization)
  Sender: FDA-Public Use
  Company Number: B0584182A

PATIENT
  Age: 61 Year
  Sex: Female

DRUGS (2)
  1. TYKERB [Suspect]
     Indication: DRUG USE FOR UNKNOWN INDICATION
     Dosage: 5U PER DAY
     Route: 065
     Dates: start: 20090708, end: 20090713
  2. XELODA [Concomitant]
     Route: 048

REACTIONS (3)
  - DEHYDRATION [None]
  - DIARRHOEA [None]
  - VOMITING [None]
